FAERS Safety Report 15477819 (Version 1)
Quarter: 2018Q4

REPORT INFORMATION
  Report Type: Spontaneous
  Country: US (occurrence: US)
  Receive Date: 20181009
  Receipt Date: 20181009
  Transmission Date: 20190205
  Serious: No
  Sender: FDA-Public Use
  Company Number: US-ASTRAZENECA-2018SF17709

PATIENT
  Sex: Female
  Weight: 56.7 kg

DRUGS (2)
  1. SYNTHROID [Concomitant]
     Active Substance: LEVOTHYROXINE SODIUM
     Indication: THYROID DISORDER
  2. ROSUVASTATIN. [Suspect]
     Active Substance: ROSUVASTATIN
     Indication: CALCINOSIS
     Dosage: CUTTING 10 MG TABLET INTO HALF TO TAKE 5 MG, GENERIC ROSUVASTATIN AT NIGHT
     Route: 048
     Dates: start: 201806

REACTIONS (4)
  - Intentional product misuse [Unknown]
  - Off label use [Unknown]
  - Alopecia [Recovered/Resolved]
  - Product use in unapproved indication [Unknown]

NARRATIVE: CASE EVENT DATE: 201807
